FAERS Safety Report 8387987-X (Version None)
Quarter: 2012Q2

REPORT INFORMATION
  Report Type: 
  Country: None (occurrence: None)
  Receive Date: 20120525
  Receipt Date: 20120524
  Transmission Date: 20120825
  Serious: Yes (Death)
  Sender: FDA-Public Use
  Company Number: PHHY2012DE044695

PATIENT
  Age: 30 Year
  Sex: Female

DRUGS (3)
  1. TACROLIMUS [Suspect]
     Indication: IMMUNOSUPPRESSION
     Dosage: 3.5 MG/ DAY
  2. AZATHIOPRINE [Suspect]
     Indication: IMMUNOSUPPRESSION
     Dosage: 100 MG/ DAY
  3. PREDNISOLONE [Suspect]
     Indication: IMMUNOSUPPRESSION
     Dosage: 10 MG/ DAY

REACTIONS (2)
  - PLASMABLASTIC LYMPHOMA [None]
  - ABDOMINAL MASS [None]
